FAERS Safety Report 26198367 (Version 1)
Quarter: 2025Q4

REPORT INFORMATION
  Report Type: Spontaneous
  Country: EU (occurrence: EU)
  Receive Date: 20251224
  Receipt Date: 20251224
  Transmission Date: 20260117
  Serious: Yes (Other)
  Sender: SANDOZ
  Company Number: EU-STADA-01508301

PATIENT
  Age: 13 Year
  Sex: Female

DRUGS (3)
  1. ADALIMUMAB [Suspect]
     Active Substance: ADALIMUMAB
     Indication: Blau syndrome
     Dosage: UNK
  2. ADALIMUMAB [Suspect]
     Active Substance: ADALIMUMAB
     Indication: Blau syndrome
     Dosage: INCREASING DOSES OR FREQUENCY.
  3. METHOTREXATE [Suspect]
     Active Substance: METHOTREXATE
     Indication: Blau syndrome

REACTIONS (3)
  - Hypercalcaemia [Unknown]
  - Nephropathy toxic [Recovering/Resolving]
  - Renal impairment [Recovering/Resolving]
